FAERS Safety Report 6294956-2 (Version None)
Quarter: 2009Q3

REPORT INFORMATION
  Report Type: 
  Country: None (occurrence: None)
  Receive Date: 20090803
  Receipt Date: 20090721
  Transmission Date: 20100115
  Serious: Yes (Hospitalization, Other)
  Sender: FDA-Public Use
  Company Number: CA-NOVOPROD-290011

PATIENT
  Sex: Male

DRUGS (12)
  1. NOVOLIN GE 30/70 [Suspect]
     Indication: DRUG USE FOR UNKNOWN INDICATION
     Dosage: 10 U, QD IN THE MORNING
  2. LIPITOR [Concomitant]
     Dosage: 10 MG, QD
  3. NORVASC [Concomitant]
     Dosage: 10 MG, QD
  4. SYNTHROID [Concomitant]
     Dosage: 25 MG, QD
  5. CELEXA [Concomitant]
     Dosage: 20 MG, QD
  6. ALLOPURINOL [Concomitant]
     Dosage: 300 MG, QD
  7. LASIX [Concomitant]
     Dosage: 80 MG, QD
  8. PALAFER [Concomitant]
     Dosage: 300 MG, BID
  9. SURFAK [Concomitant]
  10. MICARDIS [Concomitant]
  11. COLCHICINE [Concomitant]
  12. GLYBURIDE [Concomitant]
     Dosage: 5 MG, BID

REACTIONS (2)
  - ASCITES [None]
  - GANGRENE [None]
